FAERS Safety Report 8190086-3 (Version None)
Quarter: 2012Q1

REPORT INFORMATION
  Report Type: 
  Country: None (occurrence: None)
  Receive Date: 20120307
  Receipt Date: 20120307
  Transmission Date: 20120608
  Serious: No
  Sender: FDA-Public Use
  Company Number: None

PATIENT
  Age: 78 Year
  Sex: Male
  Weight: 70.306 kg

DRUGS (2)
  1. AMBIEN [Suspect]
     Indication: AGITATION
     Dosage: 1 PILL
     Route: 048
     Dates: start: 20120303, end: 20120303
  2. AMBIEN [Suspect]
     Indication: RESTLESSNESS
     Dosage: 1 PILL
     Route: 048
     Dates: start: 20120303, end: 20120303

REACTIONS (4)
  - HALLUCINATION [None]
  - AGGRESSION [None]
  - PRODUCT QUALITY ISSUE [None]
  - SUICIDAL IDEATION [None]
